FAERS Safety Report 8152440-5 (Version None)
Quarter: 2012Q1

REPORT INFORMATION
  Report Type: 
  Country: None (occurrence: None)
  Receive Date: 20120103
  Receipt Date: 20111024
  Transmission Date: 20120608
  Serious: No
  Sender: FDA-Public Use
  Company Number: AE-2011-002038

PATIENT
  Age: 49 Year
  Sex: Female
  Weight: 81.6475 kg

DRUGS (8)
  1. MULTIVITAMIN [Concomitant]
  2. CALCIUM CARBONATE [Concomitant]
  3. RIBAVIRIN [Concomitant]
  4. INCIVEK [Suspect]
     Dosage: (3 IN 1 D),ORAL
     Route: 048
     Dates: start: 20110930
  5. MAGNESIUM (MAGNESIUM) [Concomitant]
  6. LEVOXYL [Concomitant]
  7. PEGASYS [Concomitant]
  8. PHAYZYME [Concomitant]

REACTIONS (4)
  - ANORECTAL DISCOMFORT [None]
  - ANAL PRURITUS [None]
  - HAEMATOCHEZIA [None]
  - RASH [None]
